FAERS Safety Report 12413751 (Version 1)
Quarter: 2016Q2

REPORT INFORMATION
  Report Type: Spontaneous
  Country: US (occurrence: US)
  Receive Date: 20160527
  Receipt Date: 20160527
  Transmission Date: 20160815
  Serious: No
  Sender: FDA-Public Use
  Company Number: US-SUPERNUS PHARMACEUTICALS, INC.-2016SUP00048

PATIENT
  Sex: Female

DRUGS (2)
  1. TROKENDI XR [Suspect]
     Active Substance: TOPIRAMATE
     Dosage: 50 UNK, UNK
     Route: 048
     Dates: start: 201502
  2. TROKENDI XR [Suspect]
     Active Substance: TOPIRAMATE
     Indication: MIGRAINE
     Dosage: 50 MG, 1X/DAY
     Route: 048
     Dates: start: 2014, end: 201502

REACTIONS (5)
  - Paraesthesia [Unknown]
  - Drug withdrawal syndrome [Unknown]
  - Drug ineffective for unapproved indication [Unknown]
  - Malaise [Unknown]
  - Ear disorder [Unknown]

NARRATIVE: CASE EVENT DATE: 2014
